FAERS Safety Report 4322505-4 (Version None)
Quarter: 2004Q1

REPORT INFORMATION
  Report Type: 
  Country: None (occurrence: None)
  Receive Date: 20040319
  Receipt Date: 20040315
  Transmission Date: 20041129
  Serious: Yes (Hospitalization, Other)
  Sender: FDA-Public Use
  Company Number: HQWYE821915MAR04

PATIENT
  Age: 56 Year
  Sex: Male

DRUGS (4)
  1. OROKEN (CEFIXIME, UNSPEC) [Suspect]
     Indication: PYELONEPHRITIS
     Dosage: ORAL
     Route: 048
     Dates: start: 20031227, end: 20031230
  2. PYOSTACINE (PRISTINAMYCIN) [Concomitant]
  3. ROCEPHIN [Concomitant]
  4. OFLOXACIN [Concomitant]

REACTIONS (3)
  - ARTHRALGIA [None]
  - OEDEMA PERIPHERAL [None]
  - PURPURA [None]
